FAERS Safety Report 4776888-1 (Version None)
Quarter: 2005Q3

REPORT INFORMATION
  Report Type: 
  Country: None (occurrence: None)
  Receive Date: 20050914
  Receipt Date: 20040729
  Transmission Date: 20060218
  Serious: Yes (Hospitalization)
  Sender: FDA-Public Use
  Company Number: 163-20785-04070665

PATIENT
  Age: 74 Year
  Sex: Male

DRUGS (4)
  1. THALOMID [Suspect]
     Indication: GLIOBLASTOMA MULTIFORME
     Dosage: 400 MG, QHS, ORAL
     Route: 048
     Dates: start: 20040708, end: 20040713
  2. CYCLOPHOSPHAMIDE [Suspect]
     Indication: GLIOBLASTOMA MULTIFORME
     Dosage: 100 MG, DAILY, ORAL
     Route: 048
     Dates: start: 20040709, end: 20040713
  3. ETOPOSIDE [Suspect]
     Indication: GLIOBLASTOMA MULTIFORME
     Dosage: 50 MG, DAILY, ORAL
     Route: 048
     Dates: start: 20040618, end: 20040708
  4. CELECOXIB (CELECOXIB) [Suspect]
     Indication: GLIOBLASTOMA MULTIFORME
     Dosage: 200 MG, BID, ORAL
     Route: 048
     Dates: start: 20040624, end: 20040713

REACTIONS (3)
  - CONVULSION [None]
  - HYPONATRAEMIA [None]
  - SOMNOLENCE [None]
